FAERS Safety Report 11783815 (Version 3)
Quarter: 2016Q1

REPORT INFORMATION
  Report Type: Spontaneous
  Country: US (occurrence: US)
  Receive Date: 20151127
  Receipt Date: 20160211
  Transmission Date: 20160525
  Serious: Yes (Hospitalization)
  Sender: FDA-Public Use
  Company Number: US-009507513-1511USA014679

PATIENT
  Sex: Female

DRUGS (4)
  1. TRULICITY [Concomitant]
     Active Substance: DULAGLUTIDE
  2. JARDIANCE [Suspect]
     Active Substance: EMPAGLIFLOZIN
  3. THERAPY UNSPECIFIED [Suspect]
     Active Substance: UNSPECIFIED INGREDIENT
     Route: 048
  4. TOUJEO [Concomitant]
     Active Substance: INSULIN GLARGINE

REACTIONS (5)
  - Vaginal infection [Recovering/Resolving]
  - Blood glucose decreased [Unknown]
  - Cellulitis [Recovered/Resolved]
  - Neuropathy peripheral [Unknown]
  - Blood glucose increased [Unknown]
